FAERS Safety Report 5655498-8 (Version None)
Quarter: 2008Q1

REPORT INFORMATION
  Report Type: 
  Country: None (occurrence: None)
  Receive Date: 20080307
  Receipt Date: 20080303
  Transmission Date: 20080703
  Serious: Yes (Hospitalization, Other)
  Sender: FDA-Public Use
  Company Number: US-AVENTIS-200811870GDDC

PATIENT
  Age: 56 Year
  Sex: Male
  Weight: 85.5 kg

DRUGS (11)
  1. DOCETAXEL [Suspect]
     Indication: PROSTATE CANCER METASTATIC
     Route: 042
     Dates: start: 20070628, end: 20070831
  2. PREDNISONE TAB [Suspect]
     Indication: PROSTATE CANCER METASTATIC
     Route: 048
     Dates: start: 20070628, end: 20070904
  3. ENZASTAURIN [Suspect]
     Indication: PROSTATE CANCER METASTATIC
     Route: 048
     Dates: start: 20070702, end: 20070904
  4. ENZASTAURIN [Suspect]
     Route: 048
     Dates: start: 20070701, end: 20070701
  5. MONOPRIL [Concomitant]
     Dates: start: 20070712
  6. DEXAMETHASONE TAB [Concomitant]
     Dates: start: 20070628
  7. ZOCOR [Concomitant]
     Dates: start: 20070427
  8. HYDROCHLOROTHIAZIDE [Concomitant]
     Dates: start: 20070427
  9. CALCIUM WITH VITAMIN D             /01233101/ [Concomitant]
     Dates: start: 20070427
  10. ZOLADEX [Concomitant]
     Dates: start: 20060612
  11. PLAVIX [Concomitant]
     Dates: start: 20060920, end: 20070825

REACTIONS (2)
  - DEEP VEIN THROMBOSIS [None]
  - RENAL FAILURE [None]
